FAERS Safety Report 14655022 (Version 1)
Quarter: 2018Q1

REPORT INFORMATION
  Report Type: Spontaneous
  Country: JP (occurrence: JP)
  Receive Date: 20180319
  Receipt Date: 20180319
  Transmission Date: 20180509
  Serious: Yes (Other)
  Sender: FDA-Public Use
  Company Number: JP-ASTRAZENECA-2018SE34211

PATIENT
  Age: 19 Year
  Sex: Male

DRUGS (3)
  1. SEROQUEL [Suspect]
     Active Substance: QUETIAPINE FUMARATE
     Indication: SCHIZOPHRENIA
     Route: 048
  2. 5 KINDS OF SEDATIVE-HYPNOTIC/ANTIANXIETY DRUGS [Concomitant]
     Dosage: 0.4 MG/2 MG/5 MG/2 MG/10 MG
  3. DRUG FOR ALLERGY [Concomitant]

REACTIONS (9)
  - Alanine aminotransferase increased [Unknown]
  - Aspartate aminotransferase increased [Unknown]
  - Coma [Not Recovered/Not Resolved]
  - C-reactive protein increased [Unknown]
  - Intentional product misuse [Unknown]
  - Respiratory depression [Unknown]
  - Arrhythmia [Unknown]
  - Mydriasis [Unknown]
  - Vomiting [Unknown]

NARRATIVE: CASE EVENT DATE: 201803
